FAERS Safety Report 6340111-7 (Version None)
Quarter: 2009Q3

REPORT INFORMATION
  Report Type: 
  Country: None (occurrence: None)
  Receive Date: 20090902
  Receipt Date: 20090821
  Transmission Date: 20100115
  Serious: Yes (Other)
  Sender: FDA-Public Use
  Company Number: DEP_00268_2009

PATIENT
  Sex: Female
  Weight: 111.1313 kg

DRUGS (20)
  1. METFORMIN HYDROCHLORIDE [Suspect]
     Indication: BLOOD TESTOSTERONE ABNORMAL
     Dosage: (1000 MG ORAL)
     Route: 048
     Dates: start: 20040101
  2. METFORMIN HYDROCHLORIDE [Suspect]
     Indication: OFF LABEL USE
     Dosage: (1000 MG ORAL)
     Route: 048
     Dates: start: 20040101
  3. ADVAIR HFA [Suspect]
     Indication: ASTHMA
     Dosage: (1 DF BID,  500/50 UG RESPIRATORY (INHALATION))
     Route: 055
     Dates: start: 20081101, end: 20090531
  4. ADVAIR HFA [Suspect]
     Indication: BRONCHITIS
     Dosage: (1 DF BID,  500/50 UG RESPIRATORY (INHALATION))
     Route: 055
     Dates: start: 20081101, end: 20090531
  5. ADVAIR HFA [Suspect]
     Indication: WHEEZING
     Dosage: (1 DF BID,  500/50 UG RESPIRATORY (INHALATION))
     Route: 055
     Dates: start: 20081101, end: 20090531
  6. WELLBUTRIN XL [Suspect]
     Indication: DEPRESSION
     Dosage: (150 MG ORAL)
     Route: 048
     Dates: start: 20040101
  7. PRIMIDONE [Suspect]
     Indication: EPILEPSY
     Dosage: (DF ORAL), (250 MG TID OR QID ORAL)
     Route: 048
  8. LITHIUM CARBONATE [Suspect]
     Indication: MOOD SWINGS
     Dosage: (600 MG ORAL)
     Route: 048
     Dates: start: 20040101
  9. ESTRADIOL [Suspect]
     Indication: HYSTERECTOMY
     Dosage: (4 MG ORAL)
     Route: 048
     Dates: start: 20060101
  10. DICYCLOMINE HYDROCHLORIDE [Suspect]
     Indication: DYSPEPSIA
     Dosage: (40 MG ORAL)
     Route: 048
     Dates: start: 20070101
  11. RELPAX [Suspect]
     Indication: MIGRAINE
     Dosage: (20 MG ORAL)
     Route: 048
     Dates: start: 20030101
  12. PREVACID [Suspect]
     Indication: DYSPEPSIA
     Dosage: (60 MG ORAL)
     Route: 048
     Dates: start: 20030101
  13. BUPROPION HYDROCHLORIDE [Suspect]
     Indication: SEASONAL AFFECTIVE DISORDER
     Dosage: (75 MG ORAL)
     Route: 048
     Dates: start: 20010101
  14. CLOTRIMAZOLE [Suspect]
     Indication: FUNGAL INFECTION
     Dosage: (DF)
     Dates: start: 20070101
  15. XOPENEX [Concomitant]
  16. CARAFATE [Concomitant]
  17. MICONAZOLE NITRATE [Concomitant]
  18. LITHIUM SALT [Concomitant]
  19. BUSPIRONE HCL [Concomitant]
  20. TRANSDERM /00003201/ [Concomitant]

REACTIONS (7)
  - BLINDNESS TRANSIENT [None]
  - DEAFNESS TRANSITORY [None]
  - ERYTHEMA [None]
  - HYPERACUSIS [None]
  - PRURITUS [None]
  - SKIN LESION [None]
  - SWELLING FACE [None]
